FAERS Safety Report 14330098 (Version 9)
Quarter: 2018Q3

REPORT INFORMATION
  Report Type: Spontaneous
  Country: SK (occurrence: SK)
  Receive Date: 20171227
  Receipt Date: 20180820
  Transmission Date: 20181010
  Serious: Yes (Life-Threatening, Hospitalization, Other)
  Sender: FDA-Public Use
  Company Number: PHHY2017SK186971

PATIENT
  Age: 53 Year
  Sex: Female

DRUGS (27)
  1. HYDROCORTISONE. [Concomitant]
     Active Substance: HYDROCORTISONE
     Indication: IMMUNOSUPPRESSANT DRUG THERAPY
     Dosage: UNK
     Route: 065
  2. VORICONAZOLE. [Interacting]
     Active Substance: VORICONAZOLE
     Dosage: 300 MG, Q12H
     Route: 042
  3. METHYLPREDNISOLONE. [Concomitant]
     Active Substance: METHYLPREDNISOLONE
     Indication: RENAL TRANSPLANT
     Dosage: UNK
     Route: 065
  4. NOREPINEPHRINE. [Concomitant]
     Active Substance: NOREPINEPHRINE
     Indication: PRODUCT USED FOR UNKNOWN INDICATION
     Dosage: UNK
     Route: 041
  5. CIPROFLOXACIN. [Concomitant]
     Active Substance: CIPROFLOXACIN
     Indication: PRODUCT USED FOR UNKNOWN INDICATION
     Dosage: UNK
     Route: 042
  6. PIPERACILLIN AND TAZOBACTAM [Concomitant]
     Active Substance: PIPERACILLIN SODIUM\TAZOBACTAM SODIUM
     Indication: PRODUCT USED FOR UNKNOWN INDICATION
     Dosage: UNK
     Route: 065
  7. ETHAMBUTOL [Concomitant]
     Active Substance: ETHAMBUTOL HYDROCHLORIDE
     Indication: TUBERCULOSIS GASTROINTESTINAL
  8. PYRAZINAMIDE. [Concomitant]
     Active Substance: PYRAZINAMIDE
     Indication: TUBERCULOSIS
     Dosage: UNK
     Route: 065
  9. NOREPINEPHRINE. [Concomitant]
     Active Substance: NOREPINEPHRINE
     Dosage: UP TO 0.5 ?G/KG/MIN
  10. CICLOSPORIN [Concomitant]
     Active Substance: CYCLOSPORINE
     Indication: RENAL TRANSPLANT
     Dosage: 50 MG, (25 MG?0?50 MG)
     Route: 065
  11. ISONIAZID. [Concomitant]
     Active Substance: ISONIAZID
     Indication: TUBERCULOSIS GASTROINTESTINAL
     Dosage: UNK
     Route: 065
  12. NOREPINEPHRINE. [Concomitant]
     Active Substance: NOREPINEPHRINE
     Dosage: 0.4 ?G/KG/MIN
     Route: 065
  13. MEROPENEM. [Concomitant]
     Active Substance: MEROPENEM
     Indication: PRODUCT USED FOR UNKNOWN INDICATION
     Dosage: UNK
     Route: 065
  14. MYCOPHENOLATE MOFETIL. [Concomitant]
     Active Substance: MYCOPHENOLATE MOFETIL
     Indication: IMMUNOSUPPRESSANT DRUG THERAPY
  15. ETHAMBUTOL [Concomitant]
     Active Substance: ETHAMBUTOL HYDROCHLORIDE
     Indication: TUBERCULOSIS
     Dosage: UNK
     Route: 065
  16. NOREPINEPHRINE. [Concomitant]
     Active Substance: NOREPINEPHRINE
     Dosage: UNK, GRADUALLY LOWERED
  17. LINEZOLID. [Concomitant]
     Active Substance: LINEZOLID
     Indication: PRODUCT USED FOR UNKNOWN INDICATION
     Dosage: UNK
     Route: 042
  18. RIFAMPICIN [Interacting]
     Active Substance: RIFAMPIN
     Indication: PRODUCT USED FOR UNKNOWN INDICATION
     Dosage: UNK
     Route: 065
  19. CICLOSPORIN [Concomitant]
     Active Substance: CYCLOSPORINE
     Dosage: 0?25 MG, UNK
     Route: 065
  20. MYCOPHENOLATE MOFETIL. [Concomitant]
     Active Substance: MYCOPHENOLATE MOFETIL
     Indication: RENAL TRANSPLANT
     Dosage: 1000 MG, UNK
     Route: 065
  21. METHYLPREDNISOLONE. [Concomitant]
     Active Substance: METHYLPREDNISOLONE
     Indication: IMMUNOSUPPRESSANT DRUG THERAPY
  22. VORICONAZOLE. [Suspect]
     Active Substance: VORICONAZOLE
     Indication: PRODUCT USED FOR UNKNOWN INDICATION
     Dosage: 200 MG, Q12H
     Route: 042
  23. VORICONAZOLE. [Interacting]
     Active Substance: VORICONAZOLE
     Dosage: 400 MG, BID
     Route: 042
  24. CICLOSPORIN [Concomitant]
     Active Substance: CYCLOSPORINE
     Indication: IMMUNOSUPPRESSANT DRUG THERAPY
     Dosage: 0?100 MG
     Route: 065
  25. CICLOSPORIN [Concomitant]
     Active Substance: CYCLOSPORINE
     Dosage: 25 MG?0?50 MG
     Route: 065
  26. ANIDULAFUNGIN [Concomitant]
     Active Substance: ANIDULAFUNGIN
     Indication: ASPERGILLUS INFECTION
     Dosage: 200 MG, UNK
     Route: 042
  27. ANIDULAFUNGIN [Concomitant]
     Active Substance: ANIDULAFUNGIN
     Dosage: 100 MG, UNK
     Route: 042

REACTIONS (41)
  - Pneumothorax [Unknown]
  - Hyperkalaemia [Recovered/Resolved]
  - Procalcitonin increased [Recovered/Resolved]
  - Intestinal haemorrhage [Recovered/Resolved]
  - Acute respiratory distress syndrome [Recovered/Resolved]
  - Metabolic acidosis [Recovered/Resolved]
  - Dyspnoea [Recovered/Resolved]
  - Blood creatinine increased [Recovered/Resolved]
  - Hyperchloraemia [Recovered/Resolved]
  - C-reactive protein increased [Recovered/Resolved]
  - Septic shock [Recovered/Resolved]
  - Pneumonia [Recovered/Resolved]
  - Disseminated tuberculosis [Recovered/Resolved]
  - Heart rate increased [Recovered/Resolved]
  - Enteritis [Recovered/Resolved]
  - Granuloma [Recovered/Resolved]
  - Pleural effusion [Recovered/Resolved]
  - Drug level decreased [Recovered/Resolved]
  - Staphylococcal infection [Unknown]
  - Lymphadenitis [Recovered/Resolved]
  - Abdominal pain [Recovered/Resolved]
  - Blood urea increased [Recovered/Resolved]
  - Aspergillus infection [Recovered/Resolved]
  - Tuberculosis [Unknown]
  - Cough [Recovered/Resolved]
  - Aspartate aminotransferase increased [Recovered/Resolved]
  - Sepsis [Recovered/Resolved]
  - Acute kidney injury [Recovered/Resolved]
  - Pseudomonas infection [Recovered/Resolved]
  - Tuberculosis gastrointestinal [Recovered/Resolved]
  - Pulmonary tuberculosis [Unknown]
  - Pericardial effusion [Recovered/Resolved]
  - Respiratory alkalosis [Recovered/Resolved]
  - Anaemia [Recovered/Resolved]
  - Drug interaction [Unknown]
  - Multiple organ dysfunction syndrome [Recovered/Resolved]
  - Respiratory acidosis [Recovered/Resolved]
  - Pyrexia [Recovered/Resolved]
  - Salpingo-oophoritis [Recovered/Resolved]
  - Peritonitis [Recovered/Resolved]
  - Hypotension [Recovered/Resolved]
